FAERS Safety Report 22021616 (Version 1)
Quarter: 2023Q1

REPORT INFORMATION
  Report Type: Spontaneous
  Country: US (occurrence: None)
  Receive Date: 20230219
  Receipt Date: 20230219
  Transmission Date: 20230418
  Serious: Yes (unspecified)
  Sender: FDA-Public Use
  Company Number: None

PATIENT
  Age: 60 Year
  Sex: Female
  Weight: 74.25 kg

DRUGS (2)
  1. ARTIFICIAL TEARS LUBRICANT EYE DROPS (CARBOXYMETHYLCELLULOSE SODIUM) [Suspect]
     Active Substance: CARBOXYMETHYLCELLULOSE SODIUM
     Indication: Dry eye
     Dates: start: 20230110
  2. BLOOD PRESSURE MEDS [Concomitant]

REACTIONS (5)
  - Ocular hyperaemia [None]
  - Eye swelling [None]
  - Pseudomonas infection [None]
  - Keratitis bacterial [None]
  - Instillation site erythema [None]

NARRATIVE: CASE EVENT DATE: 20230114
